FAERS Safety Report 7198198-8 (Version None)
Quarter: 2010Q4

REPORT INFORMATION
  Report Type: 
  Country: None (occurrence: None)
  Receive Date: 20101223
  Receipt Date: 20101223
  Transmission Date: 20110411
  Serious: Yes (Other)
  Sender: FDA-Public Use
  Company Number: None

PATIENT
  Sex: Male
  Weight: 113.3993 kg

DRUGS (3)
  1. ROLAIDS [Suspect]
     Indication: ABDOMINAL DISCOMFORT
     Dosage: 6 CHEWS DAILY PO
     Route: 048
     Dates: start: 20090101, end: 20101212
  2. ROLAIDS [Suspect]
     Indication: ABDOMINAL DISTENSION
     Dosage: 6 CHEWS DAILY PO
     Route: 048
     Dates: start: 20090101, end: 20101212
  3. ROLAIDS [Suspect]
     Indication: FLATULENCE
     Dosage: 6 CHEWS DAILY PO
     Route: 048
     Dates: start: 20090101, end: 20101212

REACTIONS (6)
  - ABDOMINAL PAIN UPPER [None]
  - CONDITION AGGRAVATED [None]
  - DIARRHOEA [None]
  - MUSCLE SPASMS [None]
  - NAUSEA [None]
  - PRODUCT FORMULATION ISSUE [None]
